FAERS Safety Report 12622564 (Version 12)
Quarter: 2019Q1

REPORT INFORMATION
  Report Type: Report from Study
  Country: CN (occurrence: CN)
  Receive Date: 20160804
  Receipt Date: 20190228
  Transmission Date: 20190417
  Serious: Yes (Other)
  Sender: FDA-Public Use
  Company Number: PHHY2016CN104449

PATIENT
  Age: 52 Year
  Sex: Male

DRUGS (204)
  1. MYFORTIC [Suspect]
     Active Substance: MYCOPHENOLATE SODIUM
     Dosage: 360 MG, QD
     Route: 048
     Dates: start: 20160217, end: 20160225
  2. MYFORTIC [Suspect]
     Active Substance: MYCOPHENOLATE SODIUM
     Dosage: 540 MG, QD
     Route: 048
     Dates: start: 20160226, end: 20160301
  3. MYFORTIC [Suspect]
     Active Substance: MYCOPHENOLATE SODIUM
     Dosage: 720 MG, QD
     Route: 048
     Dates: start: 20160302, end: 20170120
  4. CICLOSPORIN [Suspect]
     Active Substance: CYCLOSPORINE
     Dosage: 225 MG, QD
     Route: 065
     Dates: start: 20160329, end: 20160330
  5. CICLOSPORIN [Suspect]
     Active Substance: CYCLOSPORINE
     Dosage: 175 MG, QD
     Route: 065
     Dates: start: 20160616, end: 20160713
  6. CICLOSPORIN [Suspect]
     Active Substance: CYCLOSPORINE
     Dosage: 175 MG, QD
     Route: 065
     Dates: start: 20160804, end: 20170120
  7. PREDNISONE. [Suspect]
     Active Substance: PREDNISONE
     Dosage: 20 MG, QD
     Route: 065
     Dates: start: 20160201, end: 20160213
  8. SODIUM CHLORIDE. [Concomitant]
     Active Substance: SODIUM CHLORIDE
     Dosage: 50 ML, PRN
     Route: 042
     Dates: start: 20160202, end: 20160202
  9. ALBUMIN [Concomitant]
     Active Substance: ALBUMIN HUMAN
     Dosage: 10 G, QD
     Route: 042
     Dates: start: 20160118, end: 20160118
  10. ADALAT [Concomitant]
     Active Substance: NIFEDIPINE
     Dosage: 30 MG, QD
     Route: 048
     Dates: start: 20160116, end: 20160121
  11. ADALAT [Concomitant]
     Active Substance: NIFEDIPINE
     Dosage: 30 MG, BID
     Route: 048
     Dates: start: 20160121, end: 20160222
  12. BISOPROLOL FUMARATE. [Concomitant]
     Active Substance: BISOPROLOL FUMARATE
     Indication: HYPERTENSION
     Dosage: 5 MG, PRN
     Route: 048
     Dates: start: 20160119, end: 20160119
  13. METRONIDAZOLE. [Concomitant]
     Active Substance: METRONIDAZOLE
     Indication: ANTIINFLAMMATORY THERAPY
     Dosage: 1600 MG, PRN
     Route: 049
     Dates: start: 20160214, end: 20160214
  14. CRAVIT [Concomitant]
     Active Substance: LEVOFLOXACIN
     Indication: ANTIINFLAMMATORY THERAPY
     Dosage: 100 ML, PRN
     Route: 042
     Dates: start: 20160115, end: 20160115
  15. PANTOPRAZOLE [Concomitant]
     Active Substance: PANTOPRAZOLE
     Dosage: 40 MG, PRN
     Route: 042
     Dates: start: 20160116, end: 20160116
  16. BUDESONIDE. [Concomitant]
     Active Substance: BUDESONIDE
     Indication: PRODUCTIVE COUGH
     Dosage: 1 DF (VIAL), TID
     Route: 055
     Dates: start: 20160116, end: 20160129
  17. IRON SUCROSE [Concomitant]
     Active Substance: IRON SUCROSE
     Dosage: 1 DF, PRN
     Route: 042
     Dates: start: 20160221, end: 20160221
  18. CEFOPERAZONE SODIUM AND SULBACTAM SODIUM [Concomitant]
     Active Substance: CEFOPERAZONE SODIUM\SULBACTAM SODIUM
     Indication: ANTIINFLAMMATORY THERAPY
     Dosage: 1500 MG, PRN
     Route: 042
     Dates: start: 20160207, end: 20160207
  19. SODIUM BICARBONATE. [Concomitant]
     Active Substance: SODIUM BICARBONATE
     Dosage: 125 ML, PRN
     Route: 042
     Dates: start: 20160117, end: 20160117
  20. FUROSEMIDE. [Concomitant]
     Active Substance: FUROSEMIDE
     Dosage: 80 MG, PRN
     Route: 042
     Dates: start: 20160216, end: 20160216
  21. VASOREL [Concomitant]
     Active Substance: TRIMETAZIDINE DIHYDROCHLORIDE
     Indication: PROPHYLAXIS
     Dosage: 20 MG, TID
     Route: 048
     Dates: start: 20160117, end: 20160309
  22. DOPAMINE HYDROCHLORIDE. [Concomitant]
     Active Substance: DOPAMINE HYDROCHLORIDE
     Dosage: 10 MG, PRN
     Route: 042
     Dates: start: 20160202, end: 20160202
  23. INSULIN [Concomitant]
     Active Substance: INSULIN NOS
     Dosage: 6 IU, PRN
     Route: 042
     Dates: start: 20160122, end: 20160122
  24. CEPHAZOLINE SODIUM [Concomitant]
     Active Substance: CEFAZOLIN SODIUM
     Indication: SKIN TEST
     Dosage: 500 MG, PRN
     Route: 042
     Dates: start: 20160116, end: 20160116
  25. DICLOFENAC SODIUM W/LIDOCAINE HYDROCHLORIDE [Concomitant]
     Indication: SEIZURE
     Dosage: 1 DF, QD
     Route: 030
     Dates: start: 20160116, end: 20160116
  26. PROMETHAZINE HYDROCHLORIDE. [Concomitant]
     Active Substance: PROMETHAZINE HYDROCHLORIDE
     Dosage: 25 MG, QD
     Route: 030
     Dates: start: 20160205, end: 20160205
  27. GLUTATHIONE [Concomitant]
     Active Substance: GLUTATHIONE
     Indication: PROPHYLAXIS
     Dosage: 900 MG, PRN
     Route: 042
     Dates: start: 20160116, end: 20160116
  28. GLUTATHIONE [Concomitant]
     Active Substance: GLUTATHIONE
     Dosage: 900 MG, QD
     Route: 048
     Dates: start: 20160116, end: 20160122
  29. MYFORTIC [Suspect]
     Active Substance: MYCOPHENOLATE SODIUM
     Indication: IMMUNOSUPPRESSANT DRUG THERAPY
     Dosage: 1440 MG, QD
     Route: 048
     Dates: start: 20160116, end: 20160125
  30. METHYLPREDNISOLONE. [Suspect]
     Active Substance: METHYLPREDNISOLONE
     Indication: ANTIALLERGIC THERAPY
     Dosage: 400 MG, QD
     Route: 065
     Dates: start: 20160118, end: 20160118
  31. METHYLPREDNISOLONE. [Suspect]
     Active Substance: METHYLPREDNISOLONE
     Dosage: 40 MG, PRN
     Route: 048
     Dates: start: 20160122, end: 20160122
  32. PREDNISONE. [Suspect]
     Active Substance: PREDNISONE
     Dosage: 10 MG, QD
     Route: 065
     Dates: start: 20160406, end: 20170120
  33. TACROLIMUS. [Suspect]
     Active Substance: TACROLIMUS
     Dosage: 3.5 MG, QD
     Route: 065
     Dates: start: 20160201, end: 20160213
  34. SODIUM CHLORIDE. [Concomitant]
     Active Substance: SODIUM CHLORIDE
     Dosage: 100 ML, PRN
     Route: 042
     Dates: start: 20160116, end: 20160116
  35. SODIUM CHLORIDE. [Concomitant]
     Active Substance: SODIUM CHLORIDE
     Dosage: 10 ML, QD
     Route: 042
     Dates: start: 20160126, end: 20160201
  36. ACARBOSE. [Concomitant]
     Active Substance: ACARBOSE
     Indication: BLOOD GLUCOSE INCREASED
     Dosage: 50 MG, TID
     Route: 048
     Dates: start: 20160225, end: 20160309
  37. PHENOBARBITAL SODIUM. [Concomitant]
     Active Substance: PHENOBARBITAL SODIUM
     Indication: SEDATION
     Dosage: 100 MG, PRN
     Route: 030
     Dates: start: 20160115, end: 20160115
  38. METRONIDAZOLE. [Concomitant]
     Active Substance: METRONIDAZOLE
     Dosage: 1600 MG, PRN
     Route: 049
     Dates: start: 20160221, end: 20160221
  39. CRAVIT [Concomitant]
     Active Substance: LEVOFLOXACIN
     Dosage: 100 ML, QD
     Route: 048
     Dates: start: 20160211, end: 20160211
  40. ALPROSTADIL. [Concomitant]
     Active Substance: ALPROSTADIL
     Indication: PERIPHERAL VASCULAR DISORDER
     Dosage: 10 UG, QD
     Route: 048
     Dates: start: 20160116, end: 20160228
  41. SCOPOLAMINE HYDROBROMIDE. [Concomitant]
     Active Substance: SCOPOLAMINE HYDROBROMIDE
     Indication: GASTROINTESTINAL DISORDER
     Dosage: 300 UG, PRN
     Route: 030
     Dates: start: 20160115, end: 20160115
  42. IRON SUCROSE [Concomitant]
     Active Substance: IRON SUCROSE
     Dosage: 1 DF, PRN
     Route: 042
     Dates: start: 20160219, end: 20160219
  43. IRON SUCROSE [Concomitant]
     Active Substance: IRON SUCROSE
     Dosage: 1 DF, PRN
     Route: 042
     Dates: start: 20160226, end: 20160226
  44. SODIUM BICARBONATE. [Concomitant]
     Active Substance: SODIUM BICARBONATE
     Dosage: 500 ML, PRN
     Route: 049
     Dates: start: 20160221, end: 20160221
  45. PIPERACILLIN/TAZOBACTAM [Concomitant]
     Active Substance: PIPERACILLIN SODIUM\TAZOBACTAM SODIUM
     Indication: ANTIINFLAMMATORY THERAPY
     Dosage: 1 DF (BOTTLE), TID
     Route: 042
     Dates: start: 20160214, end: 20160226
  46. DILTIAZEM HYDROCHLORIDE. [Concomitant]
     Active Substance: DILTIAZEM HYDROCHLORIDE
     Dosage: 30 MG, BID
     Route: 048
     Dates: start: 20160223, end: 20160309
  47. FUROSEMIDE. [Concomitant]
     Active Substance: FUROSEMIDE
     Dosage: 40 MG, PRN
     Route: 042
     Dates: start: 20160226, end: 20160226
  48. CETIRIZINE HYDROCHLORIDE. [Concomitant]
     Active Substance: CETIRIZINE HYDROCHLORIDE
     Dosage: 10 MG, QD
     Route: 048
     Dates: start: 20160126, end: 20160201
  49. CETIRIZINE HYDROCHLORIDE. [Concomitant]
     Active Substance: CETIRIZINE HYDROCHLORIDE
     Dosage: 10 MG, PRN
     Route: 048
     Dates: start: 20160129, end: 20160129
  50. ERYTHROPOIETIN HUMAN [Concomitant]
     Active Substance: ERYTHROPOIETIN
     Dosage: 9999 IU, PRN
     Route: 042
     Dates: start: 20160127, end: 20160127
  51. PROMETHAZINE HYDROCHLORIDE. [Concomitant]
     Active Substance: PROMETHAZINE HYDROCHLORIDE
     Indication: HYPERSENSITIVITY
     Dosage: 25 MG, PRN
     Route: 030
     Dates: start: 20160122, end: 20160122
  52. MYFORTIC [Suspect]
     Active Substance: MYCOPHENOLATE SODIUM
     Dosage: 1080 MG, QD
     Route: 048
     Dates: start: 20160126, end: 20160131
  53. CICLOSPORIN [Suspect]
     Active Substance: CYCLOSPORINE
     Dosage: 200 MG, QD
     Route: 065
     Dates: start: 20160714, end: 20160803
  54. METHYLPREDNISOLONE. [Suspect]
     Active Substance: METHYLPREDNISOLONE
     Dosage: 40 MG, PRN
     Route: 042
     Dates: start: 20160126, end: 20160201
  55. TACROLIMUS. [Suspect]
     Active Substance: TACROLIMUS
     Indication: IMMUNOSUPPRESSANT DRUG THERAPY
     Dosage: 6 MG, QD
     Route: 065
     Dates: start: 20160116, end: 20160118
  56. ALBUMIN [Concomitant]
     Active Substance: ALBUMIN HUMAN
     Dosage: 10 G, PRN
     Route: 042
     Dates: start: 20160203, end: 20160203
  57. ADALAT [Concomitant]
     Active Substance: NIFEDIPINE
     Indication: HYPERTENSION
     Dosage: 30 MG, PRN
     Route: 048
     Dates: start: 20160116, end: 20160116
  58. RECOMBINANT HUMAN ERYTHROPOIETIN [Concomitant]
     Active Substance: ERYTHROPOIETIN
     Dosage: 6000 IU, PRN
     Route: 042
     Dates: start: 20160213, end: 20160213
  59. RECOMBINANT HUMAN ERYTHROPOIETIN [Concomitant]
     Active Substance: ERYTHROPOIETIN
     Dosage: 6000 IU, PRN
     Route: 042
     Dates: start: 20160215, end: 20160215
  60. CRAVIT [Concomitant]
     Active Substance: LEVOFLOXACIN
     Indication: INFECTION PROPHYLAXIS
     Dosage: 100 ML, PRN
     Route: 042
     Dates: start: 20160211, end: 20160211
  61. LIPITOR [Concomitant]
     Active Substance: ATORVASTATIN CALCIUM
     Indication: HYPERTENSION
     Dosage: 10 MG, QD
     Route: 048
     Dates: start: 20160211, end: 20160214
  62. PANTOPRAZOLE [Concomitant]
     Active Substance: PANTOPRAZOLE
     Indication: GASTRITIS PROPHYLAXIS
     Dosage: 40 MG, QD
     Route: 042
     Dates: start: 20160116, end: 20160121
  63. IRON SUCROSE [Concomitant]
     Active Substance: IRON SUCROSE
     Dosage: 1 DF, PRN
     Route: 042
     Dates: start: 20160205, end: 20160205
  64. SMECTA [Concomitant]
     Active Substance: MONTMORILLONITE
     Indication: DIARRHOEA
     Dosage: 9 G, PRN
     Route: 048
     Dates: start: 20160120, end: 20160120
  65. SODIUM BICARBONATE. [Concomitant]
     Active Substance: SODIUM BICARBONATE
     Dosage: 500 ML, PRN
     Route: 049
     Dates: start: 20160217, end: 20160217
  66. DILTIAZEM HYDROCHLORIDE. [Concomitant]
     Active Substance: DILTIAZEM HYDROCHLORIDE
     Indication: PRODUCT USED FOR UNKNOWN INDICATION
     Dosage: 30 MG, BID
     Route: 048
     Dates: start: 20160116, end: 20160201
  67. CEFOTIAM HYDROCHLORIDE [Concomitant]
     Active Substance: CEFOTIAM HYDROCHLORIDE
     Indication: ANTIINFLAMMATORY THERAPY
     Dosage: 2000 MG, BID
     Route: 042
     Dates: start: 20160116, end: 20160122
  68. FUROSEMIDE. [Concomitant]
     Active Substance: FUROSEMIDE
     Dosage: 280 MG, PRN
     Route: 042
     Dates: start: 20160219, end: 20160219
  69. FUROSEMIDE. [Concomitant]
     Active Substance: FUROSEMIDE
     Dosage: 280 MG, PRN
     Route: 042
     Dates: start: 20160221, end: 20160221
  70. FUROSEMIDE. [Concomitant]
     Active Substance: FUROSEMIDE
     Dosage: 40 MG, PRN
     Route: 042
     Dates: start: 20160217, end: 20160217
  71. FUROSEMIDE. [Concomitant]
     Active Substance: FUROSEMIDE
     Dosage: 40 MG, PRN
     Route: 042
     Dates: start: 20160131, end: 20160131
  72. CEPHAZOLINE SODIUM [Concomitant]
     Active Substance: CEFAZOLIN SODIUM
     Dosage: 500 MG, PRN
     Route: 023
     Dates: start: 20160207, end: 20160207
  73. MUCOSOLVAN [Concomitant]
     Active Substance: AMBROXOL HYDROCHLORIDE
     Dosage: 30 MG, QD
     Route: 042
     Dates: start: 20160116, end: 20160129
  74. HUMAN SERUM ALBUMIN [Concomitant]
     Active Substance: ALBUMIN HUMAN
     Indication: PRODUCT USED FOR UNKNOWN INDICATION
     Dosage: 10 G, PRN
     Route: 042
     Dates: start: 20160115, end: 20160115
  75. HUMAN SERUM ALBUMIN [Concomitant]
     Active Substance: ALBUMIN HUMAN
     Dosage: 10 G, PRN
     Route: 042
     Dates: start: 20160129, end: 20160129
  76. ERYTHROPOIETIN HUMAN [Concomitant]
     Active Substance: ERYTHROPOIETIN
     Dosage: 9999 IU, PRN
     Route: 042
     Dates: start: 20160219, end: 20160219
  77. ERYTHROPOIETIN HUMAN [Concomitant]
     Active Substance: ERYTHROPOIETIN
     Dosage: 9999 IU, PRN
     Route: 042
     Dates: start: 20160222, end: 20160222
  78. CICLOSPORIN [Suspect]
     Active Substance: CYCLOSPORINE
     Indication: IMMUNOSUPPRESSANT DRUG THERAPY
     Dosage: 225 MG, QD
     Route: 065
     Dates: start: 20160225, end: 20160301
  79. CICLOSPORIN [Suspect]
     Active Substance: CYCLOSPORINE
     Dosage: 187.5 MG, QD
     Route: 065
     Dates: start: 20160505, end: 20160601
  80. CICLOSPORIN [Suspect]
     Active Substance: CYCLOSPORINE
     Dosage: 200 MG, QD
     Route: 065
     Dates: start: 20160602, end: 20160615
  81. METHYLPREDNISOLONE. [Suspect]
     Active Substance: METHYLPREDNISOLONE
     Dosage: 40 MG, PRN
     Route: 042
     Dates: start: 20160205, end: 20160205
  82. TACROLIMUS. [Suspect]
     Active Substance: TACROLIMUS
     Dosage: 1.5 MG, QD
     Route: 065
     Dates: start: 20160126, end: 20160129
  83. SODIUM CHLORIDE. [Concomitant]
     Active Substance: SODIUM CHLORIDE
     Dosage: 100 ML, PRN
     Route: 042
     Dates: start: 20160205, end: 20160205
  84. ALBUMIN [Concomitant]
     Active Substance: ALBUMIN HUMAN
     Indication: PRODUCT USED FOR UNKNOWN INDICATION
     Dosage: 10 G, PRN
     Route: 042
     Dates: start: 20160116, end: 20160116
  85. NITRENDIPINE [Concomitant]
     Active Substance: NITRENDIPINE
     Indication: HYPERTENSION
     Dosage: 10 MG, PRN
     Route: 048
     Dates: start: 20160208, end: 20160208
  86. PLENDIL [Concomitant]
     Active Substance: FELODIPINE
     Dosage: 5 MG, PRN
     Route: 048
     Dates: start: 20160124, end: 20160124
  87. RECOMBINANT HUMAN ERYTHROPOIETIN [Concomitant]
     Active Substance: ERYTHROPOIETIN
     Indication: RED BLOOD CELL COUNT DECREASED
     Dosage: 6000 IU, PRN
     Route: 042
     Dates: start: 20160201, end: 20160201
  88. IPRATROPIUM BROMIDE. [Concomitant]
     Active Substance: IPRATROPIUM BROMIDE
     Indication: LUNG DISORDER
     Dosage: 1 MG, TID
     Route: 055
     Dates: start: 20160123, end: 20160129
  89. MICARDIS [Concomitant]
     Active Substance: TELMISARTAN
     Dosage: 80 MG, QD
     Route: 048
     Dates: start: 20160120, end: 20160120
  90. MICARDIS [Concomitant]
     Active Substance: TELMISARTAN
     Dosage: 80 MG, PRN
     Route: 048
     Dates: start: 20160202, end: 20160202
  91. CALCIUM GLUCONATE. [Concomitant]
     Active Substance: CALCIUM GLUCONATE
     Indication: PRODUCT USED FOR UNKNOWN INDICATION
     Dosage: 10 ML, PRN
     Route: 042
     Dates: start: 20160117, end: 20160117
  92. CYMEVENE [Concomitant]
     Active Substance: GANCICLOVIR
     Indication: ANTIVIRAL PROPHYLAXIS
     Dosage: 250 MG, BID
     Route: 042
     Dates: start: 20160216, end: 20160222
  93. IRON SUCROSE [Concomitant]
     Active Substance: IRON SUCROSE
     Dosage: 1 DF, PRN
     Route: 042
     Dates: start: 20160209, end: 20160209
  94. IRON SUCROSE [Concomitant]
     Active Substance: IRON SUCROSE
     Dosage: 1 DF, PRN
     Route: 042
     Dates: start: 20160213, end: 20160213
  95. IRON SUCROSE [Concomitant]
     Active Substance: IRON SUCROSE
     Dosage: 1 DF, PRN
     Route: 042
     Dates: start: 20160228, end: 20160228
  96. FUROSEMIDE. [Concomitant]
     Active Substance: FUROSEMIDE
     Dosage: 40 MG, PRN
     Route: 042
     Dates: start: 20160215, end: 20160215
  97. FUROSEMIDE. [Concomitant]
     Active Substance: FUROSEMIDE
     Dosage: 40 MG, PRN
     Route: 042
     Dates: start: 20160306, end: 20160306
  98. FUROSEMIDE. [Concomitant]
     Active Substance: FUROSEMIDE
     Dosage: 80 MG, PRN
     Route: 042
     Dates: start: 20160227, end: 20160227
  99. FUROSEMIDE. [Concomitant]
     Active Substance: FUROSEMIDE
     Dosage: 320 MG, PRN
     Route: 042
     Dates: start: 20160129, end: 20160129
  100. CETIRIZINE HYDROCHLORIDE. [Concomitant]
     Active Substance: CETIRIZINE HYDROCHLORIDE
     Dosage: 10 MG, PRN
     Route: 048
     Dates: start: 20160126, end: 20160126
  101. CETIRIZINE HYDROCHLORIDE. [Concomitant]
     Active Substance: CETIRIZINE HYDROCHLORIDE
     Dosage: 10 MG, PRN
     Route: 048
     Dates: start: 20160205, end: 20160205
  102. DOPAMINE HYDROCHLORIDE. [Concomitant]
     Active Substance: DOPAMINE HYDROCHLORIDE
     Dosage: 10 MG, PRN
     Route: 042
     Dates: start: 20160203, end: 20160203
  103. ERYTHROPOIETIN HUMAN [Concomitant]
     Active Substance: ERYTHROPOIETIN
     Dosage: 9999 IU, PRN
     Route: 042
     Dates: start: 20160125, end: 20160125
  104. ERYTHROPOIETIN HUMAN [Concomitant]
     Active Substance: ERYTHROPOIETIN
     Dosage: 9999 IU, PRN
     Route: 042
     Dates: start: 20160228, end: 20160228
  105. MYFORTIC [Suspect]
     Active Substance: MYCOPHENOLATE SODIUM
     Dosage: 360 MG, QD
     Route: 048
     Dates: start: 20160205, end: 20160216
  106. METHYLPREDNISOLONE. [Suspect]
     Active Substance: METHYLPREDNISOLONE
     Indication: IMMUNOSUPPRESSANT DRUG THERAPY
     Dosage: 500 MG, QD
     Route: 065
     Dates: start: 20160115, end: 20160117
  107. PREDNISONE. [Suspect]
     Active Substance: PREDNISONE
     Indication: IMMUNOSUPPRESSANT DRUG THERAPY
     Dosage: 20 MG, QD
     Route: 065
     Dates: start: 20160118, end: 20160126
  108. PREDNISONE. [Suspect]
     Active Substance: PREDNISONE
     Dosage: 15 MG, QD
     Route: 065
     Dates: start: 20160214, end: 20160405
  109. TACROLIMUS. [Suspect]
     Active Substance: TACROLIMUS
     Dosage: 3.5 MG, QD
     Route: 065
     Dates: start: 20160130, end: 20160131
  110. SODIUM CHLORIDE. [Concomitant]
     Active Substance: SODIUM CHLORIDE
     Indication: PRODUCT USED FOR UNKNOWN INDICATION
     Dosage: 100 ML, PRN
     Route: 042
     Dates: start: 20160115, end: 20160115
  111. SODIUM CHLORIDE. [Concomitant]
     Active Substance: SODIUM CHLORIDE
     Dosage: 50 ML, QD
     Route: 042
     Dates: start: 20160122, end: 20160122
  112. SODIUM CHLORIDE. [Concomitant]
     Active Substance: SODIUM CHLORIDE
     Dosage: 200 ML, PRN
     Route: 042
     Dates: start: 20160129, end: 20160129
  113. GLUCOSE [Concomitant]
     Active Substance: DEXTROSE
     Indication: PRODUCT USED FOR UNKNOWN INDICATION
     Dosage: 250 ML, PRN
     Route: 042
     Dates: start: 20160117, end: 20160117
  114. ALBUMIN [Concomitant]
     Active Substance: ALBUMIN HUMAN
     Dosage: 10 G, PRN
     Route: 042
     Dates: start: 20160202, end: 20160202
  115. HEPARIN SODIUM. [Concomitant]
     Active Substance: HEPARIN SODIUM
     Indication: PRODUCT USED FOR UNKNOWN INDICATION
     Dosage: 6250 IU, QD
     Route: 042
     Dates: start: 20160116, end: 20160116
  116. RECOMBINANT HUMAN ERYTHROPOIETIN [Concomitant]
     Active Substance: ERYTHROPOIETIN
     Dosage: 6000 IU, PRN
     Route: 042
     Dates: start: 20160205, end: 20160205
  117. RECOMBINANT HUMAN ERYTHROPOIETIN [Concomitant]
     Active Substance: ERYTHROPOIETIN
     Dosage: 6000 IU, PRN
     Route: 042
     Dates: start: 20160211, end: 20160211
  118. METRONIDAZOLE. [Concomitant]
     Active Substance: METRONIDAZOLE
     Dosage: 1600 MG, PRN
     Route: 049
     Dates: start: 20160217, end: 20160217
  119. ALPROSTADIL. [Concomitant]
     Active Substance: ALPROSTADIL
     Dosage: 10 UG, PRN
     Route: 042
     Dates: start: 20160116, end: 20160116
  120. MICARDIS [Concomitant]
     Active Substance: TELMISARTAN
     Indication: HYPERTENSION
     Dosage: 80 MG, BID
     Route: 048
     Dates: start: 20160202, end: 20160203
  121. PANTOPRAZOLE [Concomitant]
     Active Substance: PANTOPRAZOLE
     Dosage: 40 MG, QD
     Route: 048
     Dates: start: 20160121, end: 20160122
  122. CYMEVENE [Concomitant]
     Active Substance: GANCICLOVIR
     Dosage: 250 MG, BID
     Route: 042
     Dates: start: 20160222, end: 20160229
  123. IRON SUCROSE [Concomitant]
     Active Substance: IRON SUCROSE
     Indication: PRODUCT USED FOR UNKNOWN INDICATION
     Dosage: 1 DF, PRN
     Route: 042
     Dates: start: 20160125, end: 20160125
  124. IRON SUCROSE [Concomitant]
     Active Substance: IRON SUCROSE
     Dosage: 1 DF, PRN
     Route: 042
     Dates: start: 20160127, end: 20160127
  125. IRON SUCROSE [Concomitant]
     Active Substance: IRON SUCROSE
     Dosage: 1 DF, PRN
     Route: 042
     Dates: start: 20160201, end: 20160201
  126. IRON SUCROSE [Concomitant]
     Active Substance: IRON SUCROSE
     Dosage: 1 DF, PRN
     Route: 042
     Dates: start: 20160211, end: 20160211
  127. IRON SUCROSE [Concomitant]
     Active Substance: IRON SUCROSE
     Dosage: 1 DF, PRN
     Route: 042
     Dates: start: 20160217, end: 20160217
  128. FUROSEMIDE. [Concomitant]
     Active Substance: FUROSEMIDE
     Dosage: 80 MG, PRN
     Route: 042
     Dates: start: 20160203, end: 20160203
  129. FUROSEMIDE. [Concomitant]
     Active Substance: FUROSEMIDE
     Dosage: 200 MG, PRN
     Route: 042
     Dates: start: 20160202, end: 20160202
  130. FUROSEMIDE. [Concomitant]
     Active Substance: FUROSEMIDE
     Dosage: 40 MG, PRN
     Route: 042
     Dates: start: 20160213, end: 20160213
  131. FUROSEMIDE. [Concomitant]
     Active Substance: FUROSEMIDE
     Dosage: 40 MG, PRN
     Route: 042
     Dates: start: 20160302, end: 20160302
  132. FUROSEMIDE. [Concomitant]
     Active Substance: FUROSEMIDE
     Dosage: 40 MG, PRN
     Route: 042
     Dates: start: 20160307, end: 20160307
  133. FUROSEMIDE. [Concomitant]
     Active Substance: FUROSEMIDE
     Dosage: 40 MG, PRN
     Route: 048
     Dates: start: 20160118, end: 20160118
  134. FUROSEMIDE. [Concomitant]
     Active Substance: FUROSEMIDE
     Dosage: 80 MG, PRN
     Route: 042
     Dates: start: 20160220, end: 20160220
  135. DOXOFYLLINE [Concomitant]
     Active Substance: DOXOFYLLINE
     Indication: WHEEZING
     Dosage: 200 MG, PRN
     Route: 042
     Dates: start: 20160116, end: 20160116
  136. LEVOCARNITINE. [Concomitant]
     Active Substance: LEVOCARNITINE
     Indication: PROPHYLAXIS
     Dosage: 1 DF, PRN
     Route: 042
     Dates: start: 20160116, end: 20160116
  137. GLUTAMINE [Concomitant]
     Active Substance: GLUTAMINE
     Indication: PROPHYLAXIS
     Dosage: 670 MG, TID
     Route: 048
     Dates: start: 20160118, end: 20160122
  138. DICLOFENAC SODIUM W/LIDOCAINE HYDROCHLORIDE [Concomitant]
     Indication: PAIN
     Dosage: 1 DF (VIAL), PRN
     Route: 030
     Dates: start: 20160119, end: 20160119
  139. ERYTHROPOIETIN HUMAN [Concomitant]
     Active Substance: ERYTHROPOIETIN
     Dosage: 9999 IU, PRN
     Route: 042
     Dates: start: 20160224, end: 20160224
  140. SODIUM CHLORIDE. [Concomitant]
     Active Substance: SODIUM CHLORIDE
     Dosage: 150 MG, PRN
     Route: 042
     Dates: start: 20160119, end: 20160119
  141. SODIUM CHLORIDE. [Concomitant]
     Active Substance: SODIUM CHLORIDE
     Dosage: 1500 MG, PRN
     Route: 042
     Dates: start: 20160215, end: 20160215
  142. ALBUMIN [Concomitant]
     Active Substance: ALBUMIN HUMAN
     Dosage: 10 MG, QD
     Route: 042
     Dates: start: 20160120, end: 20160120
  143. IPRATROPIUM BROMIDE. [Concomitant]
     Active Substance: IPRATROPIUM BROMIDE
     Indication: SPUTUM RETENTION
     Dosage: 1 DF (VIAL), QD
     Route: 055
     Dates: start: 20160116, end: 20160129
  144. LIPITOR [Concomitant]
     Active Substance: ATORVASTATIN CALCIUM
     Indication: LIPIDS INCREASED
     Dosage: 20 MG, QD
     Route: 048
     Dates: start: 20160214, end: 20160309
  145. MICARDIS [Concomitant]
     Active Substance: TELMISARTAN
     Dosage: 80 MG, PRN
     Route: 048
     Dates: start: 20160209, end: 20160209
  146. PENICILLIN [Concomitant]
     Active Substance: PENICILLIN
     Indication: SKIN TEST
     Dosage: 800000 IU, PRN
     Route: 023
     Dates: start: 20160214, end: 20160214
  147. IRON SUCROSE [Concomitant]
     Active Substance: IRON SUCROSE
     Dosage: 1 DF, PRN
     Route: 042
     Dates: start: 20160201, end: 20160201
  148. IRON SUCROSE [Concomitant]
     Active Substance: IRON SUCROSE
     Dosage: 1 DF, PRN
     Route: 042
     Dates: start: 20160215, end: 20160215
  149. FUROSEMIDE. [Concomitant]
     Active Substance: FUROSEMIDE
     Dosage: 40 MG, PRN
     Route: 042
     Dates: start: 20160116, end: 20160116
  150. FUROSEMIDE. [Concomitant]
     Active Substance: FUROSEMIDE
     Dosage: 40 MG, PRN
     Route: 042
     Dates: start: 20160222, end: 20160222
  151. FUROSEMIDE. [Concomitant]
     Active Substance: FUROSEMIDE
     Dosage: 40 MG, PRN
     Route: 042
     Dates: start: 20160305, end: 20160305
  152. FUROSEMIDE. [Concomitant]
     Active Substance: FUROSEMIDE
     Dosage: 240 MG, PRN
     Route: 042
     Dates: start: 20160119, end: 20160119
  153. PHOSPHOCREATINE SODIUM [Concomitant]
     Active Substance: PHOSPHOCREATINE SODIUM
     Dosage: 1000 MG, QD
     Route: 042
     Dates: start: 20160116, end: 20160122
  154. CETIRIZINE HYDROCHLORIDE. [Concomitant]
     Active Substance: CETIRIZINE HYDROCHLORIDE
     Indication: ANTIALLERGIC THERAPY
     Dosage: 10 MG, QD
     Route: 048
     Dates: start: 20160122, end: 20160122
  155. DOPAMINE HYDROCHLORIDE. [Concomitant]
     Active Substance: DOPAMINE HYDROCHLORIDE
     Dosage: 10 MG, PRN
     Route: 042
     Dates: start: 20160204, end: 20160204
  156. INSULIN [Concomitant]
     Active Substance: INSULIN NOS
     Indication: BLOOD GLUCOSE INCREASED
     Dosage: 6 IU, PRN
     Route: 042
     Dates: start: 20160117, end: 20160117
  157. INSULIN [Concomitant]
     Active Substance: INSULIN NOS
     Dosage: 14 IU, PRN
     Route: 042
     Dates: start: 20160123, end: 20160123
  158. CEFOTIAM HYDROCHLORIDE [Concomitant]
     Active Substance: CEFOTIAM HYDROCHLORIDE
     Dosage: 2000 MG, QD
     Route: 048
     Dates: start: 20160116, end: 20160116
  159. HUMAN SERUM ALBUMIN [Concomitant]
     Active Substance: ALBUMIN HUMAN
     Dosage: 10 G, PRN
     Route: 042
     Dates: start: 20160201, end: 20160201
  160. ERYTHROPOIETIN HUMAN [Concomitant]
     Active Substance: ERYTHROPOIETIN
     Dosage: 9999 IU, PRN
     Route: 042
     Dates: start: 20160226, end: 20160226
  161. PROMETHAZINE HYDROCHLORIDE. [Concomitant]
     Active Substance: PROMETHAZINE HYDROCHLORIDE
     Dosage: 25 MG, PRN
     Route: 030
     Dates: start: 20160126, end: 20160126
  162. PROMETHAZINE HYDROCHLORIDE. [Concomitant]
     Active Substance: PROMETHAZINE HYDROCHLORIDE
     Dosage: 25 MG, QD
     Route: 030
     Dates: start: 20160126, end: 20160201
  163. BASILIXIMAB [Suspect]
     Active Substance: BASILIXIMAB
     Indication: RENAL TRANSPLANT
     Dosage: 20 MG, QD
     Route: 065
     Dates: start: 20160116, end: 20160116
  164. TACROLIMUS. [Suspect]
     Active Substance: TACROLIMUS
     Dosage: 4.5 MG, QD
     Route: 065
     Dates: start: 20160119, end: 20160125
  165. TACROLIMUS. [Suspect]
     Active Substance: TACROLIMUS
     Dosage: 3 MG, QD
     Route: 065
     Dates: start: 20160214, end: 20160221
  166. PLENDIL [Concomitant]
     Active Substance: FELODIPINE
     Indication: HYPERTENSION
     Dosage: 5 MG, PRN
     Route: 048
     Dates: start: 20160120, end: 20160120
  167. RECOMBINANT HUMAN ERYTHROPOIETIN [Concomitant]
     Active Substance: ERYTHROPOIETIN
     Dosage: 6000 IU, PRN
     Route: 042
     Dates: start: 20160207, end: 20160207
  168. RECOMBINANT HUMAN ERYTHROPOIETIN [Concomitant]
     Active Substance: ERYTHROPOIETIN
     Dosage: 6000 IU, PRN
     Route: 042
     Dates: start: 20160209, end: 20160209
  169. LANSOPRAZOLE. [Concomitant]
     Active Substance: LANSOPRAZOLE
     Indication: GASTRITIS PROPHYLAXIS
     Dosage: 30 MG, QD
     Route: 048
     Dates: start: 20160203, end: 20160309
  170. ALPROSTADIL. [Concomitant]
     Active Substance: ALPROSTADIL
     Dosage: 10 MG, PRN
     Route: 042
     Dates: start: 20160116, end: 20160116
  171. BUDESONIDE. [Concomitant]
     Active Substance: BUDESONIDE
     Dosage: 1 DF (VIAL), TID
     Route: 055
     Dates: start: 20160123, end: 20160129
  172. IRON SUCROSE [Concomitant]
     Active Substance: IRON SUCROSE
     Dosage: 1 DF, PRN
     Route: 042
     Dates: start: 20160224, end: 20160224
  173. SODIUM BICARBONATE. [Concomitant]
     Active Substance: SODIUM BICARBONATE
     Indication: HYPERCHLORHYDRIA
     Dosage: 500 ML, PRN
     Route: 049
     Dates: start: 20160214, end: 20160214
  174. CEFOTIAM HYDROCHLORIDE [Concomitant]
     Active Substance: CEFOTIAM HYDROCHLORIDE
     Dosage: 2000 MG, QD
     Route: 048
     Dates: start: 20160116, end: 20160116
  175. FUROSEMIDE. [Concomitant]
     Active Substance: FUROSEMIDE
     Dosage: 80 MG, QD
     Route: 048
     Dates: start: 20160117, end: 20160117
  176. FUROSEMIDE. [Concomitant]
     Active Substance: FUROSEMIDE
     Dosage: 80 MG, PRN
     Route: 042
     Dates: start: 20160304, end: 20160304
  177. PHOSPHOCREATINE SODIUM [Concomitant]
     Active Substance: PHOSPHOCREATINE SODIUM
     Indication: PROPHYLAXIS
     Dosage: 1 G, QD
     Route: 042
     Dates: start: 20160116, end: 20160116
  178. DOPAMINE HYDROCHLORIDE. [Concomitant]
     Active Substance: DOPAMINE HYDROCHLORIDE
     Indication: PERIPHERAL VASCULAR DISORDER
     Dosage: 10 MG, QD
     Route: 042
     Dates: start: 20160204, end: 20160309
  179. LEVOCARNITINE. [Concomitant]
     Active Substance: LEVOCARNITINE
     Dosage: 1 DF, QD
     Route: 042
     Dates: start: 20160116, end: 20160122
  180. ERYTHROPOIETIN HUMAN [Concomitant]
     Active Substance: ERYTHROPOIETIN
     Dosage: 9999 IU, PRN
     Route: 042
     Dates: start: 20160217, end: 20160217
  181. MYFORTIC [Suspect]
     Active Substance: MYCOPHENOLATE SODIUM
     Indication: RENAL TRANSPLANT
     Dosage: 720 MG, QD
     Route: 048
     Dates: start: 20160115, end: 20160115
  182. MYFORTIC [Suspect]
     Active Substance: MYCOPHENOLATE SODIUM
     Dosage: 540 MG, QD
     Route: 048
     Dates: start: 20160201, end: 20160204
  183. BASILIXIMAB [Suspect]
     Active Substance: BASILIXIMAB
     Indication: IMMUNOSUPPRESSANT DRUG THERAPY
     Dosage: 20 MG, QD
     Route: 065
     Dates: start: 20160119, end: 20160119
  184. CICLOSPORIN [Suspect]
     Active Substance: CYCLOSPORINE
     Indication: RENAL TRANSPLANT
     Dosage: 200 MG, QD
     Route: 065
     Dates: start: 20160223, end: 20160224
  185. CICLOSPORIN [Suspect]
     Active Substance: CYCLOSPORINE
     Dosage: 200 MG, QD
     Route: 065
     Dates: start: 20160302, end: 20160328
  186. CICLOSPORIN [Suspect]
     Active Substance: CYCLOSPORINE
     Dosage: 200 MG, QD
     Route: 065
     Dates: start: 20160331, end: 20160504
  187. TALCID [Concomitant]
     Active Substance: HYDROTALCITE
     Indication: GASTRITIS PROPHYLAXIS
     Dosage: 1000 MG, PRN
     Route: 048
     Dates: start: 20160118, end: 20160118
  188. CARDURA [Concomitant]
     Active Substance: DOXAZOSIN MESYLATE
     Indication: HYPERTENSION
     Dosage: 4 MG, BID
     Route: 048
     Dates: start: 20160210, end: 20160222
  189. CRAVIT [Concomitant]
     Active Substance: LEVOFLOXACIN
     Dosage: 5 ML, PRN
     Route: 047
     Dates: start: 20160228, end: 20160228
  190. LIVARACINE [Concomitant]
     Indication: ANTICOAGULANT THERAPY
     Dosage: 2500 IU, QD
     Route: 042
     Dates: start: 20160119, end: 20160201
  191. LIVARACINE [Concomitant]
     Dosage: 2500 IU, PRN
     Route: 042
     Dates: start: 20160119, end: 20160119
  192. LIVARACINE [Concomitant]
     Dosage: 2500 IU, PRN
     Route: 042
     Dates: start: 20160205, end: 20160205
  193. MICARDIS [Concomitant]
     Active Substance: TELMISARTAN
     Dosage: 80 MG, PRN
     Route: 048
     Dates: start: 20160131, end: 20160131
  194. PANTOPRAZOLE [Concomitant]
     Active Substance: PANTOPRAZOLE
     Dosage: 40 MG, PRN
     Route: 048
     Dates: start: 20160116, end: 20160116
  195. IRON SUCROSE [Concomitant]
     Active Substance: IRON SUCROSE
     Dosage: 1 DF, PRN
     Route: 042
     Dates: start: 20160129, end: 20160129
  196. CEFOPERAZONE SODIUM AND SULBACTAM SODIUM [Concomitant]
     Active Substance: CEFOPERAZONE SODIUM\SULBACTAM SODIUM
     Indication: INFECTION PROPHYLAXIS
     Dosage: 1500 MG, BID
     Route: 042
     Dates: start: 20160207, end: 20160214
  197. FUROSEMIDE. [Concomitant]
     Active Substance: FUROSEMIDE
     Indication: POLYURIA
     Dosage: 120 MG, PRN
     Route: 042
     Dates: start: 20160117, end: 20160117
  198. FUROSEMIDE. [Concomitant]
     Active Substance: FUROSEMIDE
     Dosage: 80 MG, PRN
     Route: 042
     Dates: start: 20160224, end: 20160224
  199. INSULIN [Concomitant]
     Active Substance: INSULIN NOS
     Dosage: 14 IU, PRN
     Route: 042
     Dates: start: 20160224, end: 20160224
  200. DOXOFYLLINE [Concomitant]
     Active Substance: DOXOFYLLINE
     Indication: COUGH
     Dosage: 200 MG, QD
     Route: 042
     Dates: start: 20160116, end: 20160129
  201. CEFOTIAM HYDROCHLORIDE [Concomitant]
     Active Substance: CEFOTIAM HYDROCHLORIDE
     Indication: ANTIINFLAMMATORY THERAPY
     Dosage: 2000 MG, BID
     Route: 042
     Dates: start: 20160116, end: 20160122
  202. MUCOSOLVAN [Concomitant]
     Active Substance: AMBROXOL HYDROCHLORIDE
     Indication: PRODUCTIVE COUGH
     Dosage: 15 MG, TID
     Route: 055
     Dates: start: 20160116, end: 20160129
  203. MUCOSOLVAN [Concomitant]
     Active Substance: AMBROXOL HYDROCHLORIDE
     Dosage: 15 MG, TID
     Route: 055
     Dates: start: 20160123, end: 20160129
  204. ERYTHROPOIETIN HUMAN [Concomitant]
     Active Substance: ERYTHROPOIETIN
     Indication: RED BLOOD CELL COUNT DECREASED
     Dosage: 9999 IU, PRN
     Route: 042
     Dates: start: 20160102, end: 20160129

REACTIONS (13)
  - Kidney transplant rejection [Recovered/Resolved]
  - Mouth ulceration [Recovered/Resolved]
  - Haemoglobin decreased [Unknown]
  - Neutrophil count increased [Unknown]
  - Lymphocyte count decreased [Unknown]
  - Dyspnoea [Recovered/Resolved]
  - Diabetes mellitus [Recovering/Resolving]
  - Platelet count decreased [Unknown]
  - White blood cell count increased [Unknown]
  - Incision site pain [Recovered/Resolved]
  - Complications of transplanted kidney [Recovered/Resolved]
  - Chest discomfort [Recovered/Resolved]
  - Hyperlipidaemia [Recovered/Resolved]

NARRATIVE: CASE EVENT DATE: 20160116
